FAERS Safety Report 5928136-4 (Version None)
Quarter: 2008Q4

REPORT INFORMATION
  Report Type: 
  Country: None (occurrence: None)
  Receive Date: 20081023
  Receipt Date: 20081015
  Transmission Date: 20090506
  Serious: Yes (Other)
  Sender: FDA-Public Use
  Company Number: US-JNJFOC-20081004052

PATIENT
  Age: 82 Year
  Sex: Female
  Weight: 54.43 kg

DRUGS (11)
  1. EXTRA STRENGTH TYLENOL [Suspect]
     Route: 048
  2. EXTRA STRENGTH TYLENOL [Suspect]
     Indication: HEADACHE
     Route: 048
  3. FIORINAL [Concomitant]
     Indication: HEADACHE
  4. FUROSEMIDE [Concomitant]
     Indication: CARDIAC DISORDER
  5. DIOVAN [Concomitant]
     Indication: HYPERTENSION
  6. VYTORIN [Concomitant]
     Indication: BLOOD CHOLESTEROL ABNORMAL
  7. ZOCOR [Concomitant]
     Indication: BLOOD CHOLESTEROL ABNORMAL
  8. SOTALOL [Concomitant]
     Indication: CARDIAC DISORDER
  9. REGLAN [Concomitant]
     Indication: ABDOMINAL DISCOMFORT
  10. CITALOPRAM HYDROBROMIDE [Concomitant]
     Indication: DEPRESSION
  11. XANAX [Concomitant]
     Indication: ANXIETY

REACTIONS (5)
  - DEPRESSION [None]
  - DIZZINESS [None]
  - FEELING ABNORMAL [None]
  - NAUSEA [None]
  - NERVOUSNESS [None]
